FAERS Safety Report 7439226-1 (Version None)
Quarter: 2011Q2

REPORT INFORMATION
  Report Type: 
  Country: None (occurrence: None)
  Receive Date: 20110421
  Receipt Date: 20110421
  Transmission Date: 20111010
  Serious: No
  Sender: FDA-Public Use
  Company Number: None

PATIENT

DRUGS (1)
  1. LYRICA [Suspect]
     Dates: start: 20080601, end: 20080801

REACTIONS (5)
  - BALANCE DISORDER [None]
  - INSOMNIA [None]
  - OFF LABEL USE [None]
  - FALL [None]
  - GAIT DISTURBANCE [None]
